FAERS Safety Report 4710691-3 (Version None)
Quarter: 2005Q3

REPORT INFORMATION
  Report Type: 
  Country: None (occurrence: None)
  Receive Date: 20050711
  Receipt Date: 20050602
  Transmission Date: 20060218
  Serious: Yes (Death)
  Sender: FDA-Public Use
  Company Number: US-MERCK-0506USA00596

PATIENT
  Sex: Female

DRUGS (3)
  1. VIOXX [Suspect]
     Route: 048
     Dates: start: 20000101, end: 20030523
  2. VIOXX [Suspect]
     Route: 048
     Dates: start: 20000601, end: 20000906
  3. CELEBREX [Concomitant]
     Route: 065
     Dates: start: 20000101, end: 20030523

REACTIONS (1)
  - MYOCARDIAL INFARCTION [None]
